FAERS Safety Report 19055668 (Version 1)
Quarter: 2021Q1

REPORT INFORMATION
  Report Type: Spontaneous
  Country: GB (occurrence: GB)
  Receive Date: 20210325
  Receipt Date: 20210325
  Transmission Date: 20210420
  Serious: Yes (Life-Threatening, Hospitalization)
  Sender: FDA-Public Use
  Company Number: GB-ACCORD-220298

PATIENT
  Sex: Male
  Weight: 67 kg

DRUGS (5)
  1. RIFAMPICIN [Concomitant]
     Active Substance: RIFAMPIN
  2. DAPTOMYCIN. [Suspect]
     Active Substance: DAPTOMYCIN
     Indication: ENDOCARDITIS STAPHYLOCOCCAL
  3. GENTAMICIN. [Concomitant]
     Active Substance: GENTAMICIN
  4. CLINDAMYCIN. [Suspect]
     Active Substance: CLINDAMYCIN
     Indication: ENDOCARDITIS STAPHYLOCOCCAL
  5. VANCOMYCIN [Concomitant]
     Active Substance: VANCOMYCIN

REACTIONS (6)
  - Staphylococcal infection [Unknown]
  - Necrotising fasciitis [Unknown]
  - Chest pain [Unknown]
  - Limb discomfort [Unknown]
  - Staphylococcal sepsis [Unknown]
  - Joint swelling [Unknown]
